FAERS Safety Report 13910859 (Version 4)
Quarter: 2017Q3

REPORT INFORMATION
  Report Type: Spontaneous
  Country: JP (occurrence: JP)
  Receive Date: 20170828
  Receipt Date: 20170922
  Transmission Date: 20171127
  Serious: Yes (Hospitalization, Other)
  Sender: FDA-Public Use
  Company Number: PHJP2017JP026138

PATIENT
  Age: 63 Year
  Sex: Male

DRUGS (11)
  1. PREDNISOLON [Suspect]
     Active Substance: PREDNISOLONE
     Dosage: 10 MG, UNK
     Route: 048
  2. NEORAL [Suspect]
     Active Substance: CYCLOSPORINE
     Dosage: UNK
     Route: 048
  3. NEORAL [Suspect]
     Active Substance: CYCLOSPORINE
     Dosage: UNK
     Route: 048
  4. PREDNISOLON [Suspect]
     Active Substance: PREDNISOLONE
     Indication: PEMPHIGOID
     Dosage: 20 MG, QD
     Route: 048
     Dates: start: 201402
  5. PREDNISOLON [Suspect]
     Active Substance: PREDNISOLONE
     Dosage: EQUAL TO OR LESS THAN 12 MG DAILY
     Route: 048
     Dates: start: 201603
  6. NEORAL [Suspect]
     Active Substance: CYCLOSPORINE
     Dosage: 300 MG, QD
     Route: 048
     Dates: end: 201603
  7. NEORAL [Suspect]
     Active Substance: CYCLOSPORINE
     Dosage: 225 MG, UNK
     Route: 048
  8. PREDNISOLON [Suspect]
     Active Substance: PREDNISOLONE
     Dosage: UNK
     Route: 048
  9. NEORAL [Suspect]
     Active Substance: CYCLOSPORINE
     Indication: PEMPHIGOID
     Dosage: 100 MG, QD
     Route: 048
     Dates: start: 201402
  10. NEORAL [Suspect]
     Active Substance: CYCLOSPORINE
     Dosage: 200 MG, UNK
     Route: 048
  11. PREDNISOLON [Suspect]
     Active Substance: PREDNISOLONE
     Dosage: UNK
     Route: 048

REACTIONS (6)
  - Rash [Unknown]
  - Renal impairment [Unknown]
  - Product use in unapproved indication [Unknown]
  - Osteonecrosis [Unknown]
  - Myopathy [Unknown]
  - Asthenia [Unknown]

NARRATIVE: CASE EVENT DATE: 201505
